FAERS Safety Report 6003271-3 (Version None)
Quarter: 2008Q4

REPORT INFORMATION
  Report Type: 
  Country: None (occurrence: None)
  Receive Date: 20081212
  Receipt Date: 20081204
  Transmission Date: 20090506
  Serious: Yes (Hospitalization)
  Sender: FDA-Public Use
  Company Number: ADE2008-0402

PATIENT
  Age: 20 Year
  Sex: Male

DRUGS (5)
  1. CIPROFLOXACIN [Suspect]
     Dosage: PO
     Route: 048
  2. AZITHROMYCIN [Suspect]
  3. OMEPRAZOLE [Suspect]
  4. CORTICOSTEROIDS [Concomitant]
  5. ANTI-PSEUDOMONAL ANTIBIOTICS [Concomitant]

REACTIONS (11)
  - ABDOMINAL PAIN LOWER [None]
  - APPENDIX DISORDER [None]
  - CLOSTRIDIUM DIFFICILE COLITIS [None]
  - CONSTIPATION [None]
  - DEHYDRATION [None]
  - HYPOTENSION [None]
  - INFLAMMATION [None]
  - PSEUDOMEMBRANOUS COLITIS [None]
  - PYREXIA [None]
  - TACHYCARDIA [None]
  - VOMITING [None]
